FAERS Safety Report 7581042-4 (Version None)
Quarter: 2011Q2

REPORT INFORMATION
  Report Type: 
  Country: None (occurrence: None)
  Receive Date: 20110629
  Receipt Date: 20110623
  Transmission Date: 20111010
  Serious: Yes (Other)
  Sender: FDA-Public Use
  Company Number: JP-EISAI INC-E2090-01661-SPO-JP

PATIENT
  Age: 75 Year
  Sex: Male

DRUGS (1)
  1. ZONISAMIDE [Suspect]
     Dosage: 100 MG
     Route: 048
     Dates: start: 20081201, end: 20090101

REACTIONS (2)
  - OCULOMUCOCUTANEOUS SYNDROME [None]
  - LIVER DISORDER [None]
